FAERS Safety Report 24898001 (Version 1)
Quarter: 2025Q1

REPORT INFORMATION
  Report Type: Spontaneous
  Country: CN (occurrence: CN)
  Receive Date: 20250129
  Receipt Date: 20250129
  Transmission Date: 20250408
  Serious: Yes (Hospitalization)
  Sender: NOVARTIS
  Company Number: CN-002147023-NVSC2025CN009363

PATIENT
  Age: 85 Year
  Sex: Male
  Weight: 93 kg

DRUGS (1)
  1. GLIVEC [Suspect]
     Active Substance: IMATINIB MESYLATE
     Indication: Gastrointestinal stromal tumour
     Dosage: 400 MG, QD (0.4 G)
     Route: 048
     Dates: start: 20221102, end: 20241231

REACTIONS (11)
  - Oedema [Recovering/Resolving]
  - Oedema peripheral [Recovering/Resolving]
  - Localised oedema [Unknown]
  - Hypoproteinaemia [Recovering/Resolving]
  - Eye oedema [Unknown]
  - Dyspnoea [Unknown]
  - Somnolence [Unknown]
  - Chest discomfort [Unknown]
  - Blood albumin increased [Unknown]
  - Pleural effusion [Unknown]
  - Intra-abdominal fluid collection [Unknown]

NARRATIVE: CASE EVENT DATE: 20241231
